FAERS Safety Report 16424648 (Version 1)
Quarter: 2019Q2

REPORT INFORMATION
  Report Type: Spontaneous
  Country: FR (occurrence: FR)
  Receive Date: 20190613
  Receipt Date: 20190613
  Transmission Date: 20190711
  Serious: Yes (Hospitalization)
  Sender: FDA-Public Use
  Company Number: FR-ACCORD-132732

PATIENT
  Age: 89 Year
  Sex: Female
  Weight: 64 kg

DRUGS (7)
  1. LOSARTAN ACCORD [Concomitant]
     Route: 048
  2. FUROSEMIDE ARROW [Concomitant]
     Active Substance: FUROSEMIDE
     Dosage: SCORED TABLET
     Route: 048
  3. LEVOTHYROX [Concomitant]
     Active Substance: LEVOTHYROXINE
     Indication: HYPOTHYROIDISM
     Dosage: SCORED TABLET
     Route: 048
     Dates: start: 20190409
  4. ALLOPURINOL. [Suspect]
     Active Substance: ALLOPURINOL
     Indication: PRODUCT USED FOR UNKNOWN INDICATION
     Route: 048
     Dates: start: 20190306, end: 20190429
  5. BISOPROLOL [Concomitant]
     Active Substance: BISOPROLOL
     Route: 048
  6. MOLSIDOMINE ARROW [Concomitant]
     Active Substance: MOLSIDOMINE
     Dosage: SCORED TABLET
     Route: 048
  7. KARDEGIC [Concomitant]
     Active Substance: ASPIRIN DL-LYSINE
     Dosage: POWDER FOR ORAL SOLUTION IN SACHET-DOSE
     Route: 048
     Dates: start: 2017

REACTIONS (1)
  - Drug reaction with eosinophilia and systemic symptoms [Recovering/Resolving]

NARRATIVE: CASE EVENT DATE: 201904
